FAERS Safety Report 14879066 (Version 2)
Quarter: 2018Q2

REPORT INFORMATION
  Report Type: Spontaneous
  Country: US (occurrence: US)
  Receive Date: 20180511
  Receipt Date: 20180517
  Transmission Date: 20180711
  Serious: No
  Sender: FDA-Public Use
  Company Number: US-SA-2018SA034083

PATIENT
  Sex: Male

DRUGS (3)
  1. LANTUS SOLOSTAR [Suspect]
     Active Substance: INSULIN GLARGINE
     Indication: DIABETES MELLITUS
     Route: 051
  2. APIDRA [Suspect]
     Active Substance: INSULIN GLULISINE
     Route: 058
  3. SOLOSTAR [Suspect]
     Active Substance: DEVICE

REACTIONS (3)
  - Renal disorder [Unknown]
  - Unevaluable event [Unknown]
  - Injection site pain [Unknown]
